FAERS Safety Report 15378961 (Version 2)
Quarter: 2018Q4

REPORT INFORMATION
  Report Type: Spontaneous
  Country: US (occurrence: US)
  Receive Date: 20180913
  Receipt Date: 20181126
  Transmission Date: 20190204
  Serious: Yes (Hospitalization)
  Sender: FDA-Public Use
  Company Number: US-UGNX-US-UGNX-18-00104

PATIENT
  Sex: Male

DRUGS (1)
  1. MEPSEVII [Suspect]
     Active Substance: VESTRONIDASE ALFA-VJBK
     Indication: MUCOPOLYSACCHARIDOSIS VII

REACTIONS (4)
  - Neutrophil count decreased [Unknown]
  - Product dose omission [Unknown]
  - Hospitalisation [Unknown]
  - Neutropenia [Unknown]
